FAERS Safety Report 16710612 (Version 2)
Quarter: 2019Q3

REPORT INFORMATION
  Report Type: Spontaneous
  Country: US (occurrence: US)
  Receive Date: 20190816
  Receipt Date: 20190909
  Transmission Date: 20191004
  Serious: No
  Sender: FDA-Public Use
  Company Number: US-009507513-1908USA002200

PATIENT
  Age: 34 Year
  Sex: Female

DRUGS (7)
  1. PREGNYL [Suspect]
     Active Substance: CHORIOGONADOTROPIN ALFA
     Indication: INFERTILITY FEMALE
     Dosage: 10000 UNITS, AS DIRECTED
     Route: 030
     Dates: start: 20190605
  2. FOLLISTIM AQ [Suspect]
     Active Substance: FOLLITROPIN
     Indication: INFERTILITY FEMALE
     Dosage: 150 UNITS, QD
     Route: 058
  3. CRINONE [Concomitant]
     Active Substance: PROGESTERONE
     Dosage: UNK
  4. MENOPUR [Concomitant]
     Active Substance: FOLLITROPIN\LUTEINIZING HORMONE
     Dosage: UNK
  5. GANIRELIX ACETATE INJECTION [Suspect]
     Active Substance: GANIRELIX ACETATE
     Dosage: UNK
  6. DOXYCYCLINE. [Concomitant]
     Active Substance: DOXYCYCLINE
     Dosage: UNK
  7. LEUPROLIDE [Concomitant]
     Active Substance: LEUPROLIDE
     Dosage: UNK

REACTIONS (4)
  - Muscle tightness [Unknown]
  - Skin tightness [Unknown]
  - Injection site urticaria [Unknown]
  - Paraesthesia [Unknown]

NARRATIVE: CASE EVENT DATE: 20190801
